FAERS Safety Report 6720550-2 (Version None)
Quarter: 2010Q2

REPORT INFORMATION
  Report Type: 
  Country: None (occurrence: None)
  Receive Date: 20100511
  Receipt Date: 20100511
  Transmission Date: 20101027
  Serious: Yes (Hospitalization)
  Sender: FDA-Public Use
  Company Number: None

PATIENT
  Age: 55 Year
  Sex: Male
  Weight: 72.5755 kg

DRUGS (2)
  1. DIAZEPAM [Suspect]
     Indication: HYPERTROPHIC CARDIOMYOPATHY
     Dosage: 10MG BID MOUTH
     Route: 048
     Dates: start: 20091212, end: 20100214
  2. DIAZEPAM [Suspect]
     Indication: ANXIETY
     Dosage: 10MG BID MOUTH
     Route: 048
     Dates: start: 20091215, end: 20100419

REACTIONS (2)
  - ATRIAL FIBRILLATION [None]
  - HYPERTROPHIC CARDIOMYOPATHY [None]
